FAERS Safety Report 9607594 (Version 5)
Quarter: 2014Q2

REPORT INFORMATION
  Report Type: Spontaneous
  Country: DE (occurrence: DE)
  Receive Date: 20131009
  Receipt Date: 20140630
  Transmission Date: 20141212
  Serious: Yes (Life-Threatening, Other)
  Sender: FDA-Public Use
  Company Number: PHHY2013DE111657

PATIENT
  Sex: Female
  Weight: 59 kg

DRUGS (2)
  1. TASIGNA [Suspect]
     Indication: CHRONIC MYELOID LEUKAEMIA
     Dosage: 300 MG, BID
     Route: 048
     Dates: start: 20121204, end: 20130507
  2. L-THYROXIN [Concomitant]
     Indication: HYPOTHYROIDISM
     Dosage: 75 UG, DAILY
     Route: 048

REACTIONS (10)
  - Aplastic anaemia [Recovered/Resolved]
  - Anaemia [Unknown]
  - Thrombocytopenia [Unknown]
  - Leukopenia [Unknown]
  - Neutropenia [Unknown]
  - Pancytopenia [Unknown]
  - General physical health deterioration [Recovered/Resolved]
  - Leukaemia recurrent [Unknown]
  - Chronic myeloid leukaemia [Recovered/Resolved]
  - Gastritis [Recovered/Resolved]
